FAERS Safety Report 8308634-9 (Version None)
Quarter: 2012Q2

REPORT INFORMATION
  Report Type: 
  Country: None (occurrence: None)
  Receive Date: 20120424
  Receipt Date: 20120411
  Transmission Date: 20120825
  Serious: Yes (Other)
  Sender: FDA-Public Use
  Company Number: US-ROCHE-784229

PATIENT
  Sex: Female
  Weight: 52.21 kg

DRUGS (4)
  1. ACCUTANE [Suspect]
     Indication: ACNE
     Dates: start: 20020208, end: 20020731
  2. AMNESTEEM [Suspect]
     Indication: ACNE
     Dates: start: 20030523, end: 20031206
  3. ORTHO TRI-CYCLEN [Concomitant]
  4. OVCON-35 [Concomitant]

REACTIONS (4)
  - DEPRESSION [None]
  - COLITIS ULCERATIVE [None]
  - INFLAMMATORY BOWEL DISEASE [None]
  - STRESS [None]
